FAERS Safety Report 7657966-6 (Version None)
Quarter: 2011Q3

REPORT INFORMATION
  Report Type: 
  Country: None (occurrence: None)
  Receive Date: 20110805
  Receipt Date: 20110802
  Transmission Date: 20111222
  Serious: No
  Sender: FDA-Public Use
  Company Number: US-BIOGENIDEC-2011BI028774

PATIENT
  Sex: Female

DRUGS (1)
  1. AVONEX [Suspect]
     Indication: MULTIPLE SCLEROSIS
     Route: 030
     Dates: start: 19960610, end: 19980610

REACTIONS (8)
  - ANXIETY [None]
  - VERTIGO [None]
  - TEMPERATURE INTOLERANCE [None]
  - INSOMNIA [None]
  - DIZZINESS [None]
  - NAUSEA [None]
  - HEADACHE [None]
  - GAIT DISTURBANCE [None]
